FAERS Safety Report 7189424-X (Version None)
Quarter: 2010Q4

REPORT INFORMATION
  Report Type: 
  Country: None (occurrence: None)
  Receive Date: 20101222
  Receipt Date: 20101026
  Transmission Date: 20110411
  Serious: Yes (Other)
  Sender: FDA-Public Use
  Company Number: US-AMGEN-KDL426891

PATIENT

DRUGS (15)
  1. ENBREL [Suspect]
     Indication: PSORIASIS
     Dosage: 50 MG, 2 TIMES/WK
  2. ENBREL [Suspect]
     Dosage: 50 MG, QWK
     Dates: start: 20100301, end: 20100601
  3. ENBREL [Suspect]
     Dosage: 50 MG, QWK
     Route: 058
     Dates: start: 20100415, end: 20100701
  4. ACETYLSALICYLIC ACID [Concomitant]
     Dosage: 8 MG, UNK
     Route: 048
  5. ATENOLOL [Concomitant]
     Dosage: 100 MG, UNK
     Route: 048
  6. HYDROCHLOROTHIAZIDE [Concomitant]
     Dosage: 25 UNK, UNK
     Route: 048
  7. OMEPRAZOLE [Concomitant]
     Dosage: 20 UNK, UNK
     Route: 048
  8. LISINOPRIL [Concomitant]
     Dosage: 40 UNK, UNK
     Route: 048
  9. TIZANIDINE HCL [Concomitant]
     Dosage: 20 UNK, UNK
     Route: 048
  10. TIZANIDINE HCL [Concomitant]
     Dosage: 10 UNK, UNK
     Route: 048
  11. CYMBALTA [Concomitant]
     Dosage: 60 UNK, UNK
  12. HYDROCODONE BITARTRATE AND ACETAMINOPHEN [Concomitant]
     Dosage: UNK UNK, Q6H
  13. AMLODIPINE [Concomitant]
     Dosage: 5 MG, QD
  14. AMBIEN CR [Concomitant]
     Dosage: UNK UNK, PRN
  15. VITAMIN A [Concomitant]
     Dosage: 2000 IU, UNK

REACTIONS (3)
  - AUTOIMMUNE HEPATITIS [None]
  - LIVER FUNCTION TEST ABNORMAL [None]
  - MALAISE [None]
